FAERS Safety Report 18058267 (Version 4)
Quarter: 2020Q3

REPORT INFORMATION
  Report Type: Report from Study
  Country: US (occurrence: US)
  Receive Date: 20200723
  Receipt Date: 20200905
  Transmission Date: 20201103
  Serious: No
  Sender: FDA-Public Use
  Company Number: NVSC2020US207508

PATIENT
  Sex: Female

DRUGS (2)
  1. GILENYA [Suspect]
     Active Substance: FINGOLIMOD HYDROCHLORIDE
     Indication: MULTIPLE SCLEROSIS
     Dosage: 0.5 MG, QD
     Route: 048
  2. GILENYA [Suspect]
     Active Substance: FINGOLIMOD HYDROCHLORIDE
     Dosage: 0.5 MG, QD
     Route: 048

REACTIONS (8)
  - Coordination abnormal [Unknown]
  - Joint swelling [Unknown]
  - Ocular discomfort [Unknown]
  - Dizziness [Unknown]
  - Eye pain [Unknown]
  - Headache [Unknown]
  - Temperature intolerance [Unknown]
  - Knee deformity [Unknown]
